FAERS Safety Report 7609517-X (Version None)
Quarter: 2011Q3

REPORT INFORMATION
  Report Type: 
  Country: None (occurrence: None)
  Receive Date: 20110714
  Receipt Date: 20110706
  Transmission Date: 20111222
  Serious: Yes (Hospitalization, Other)
  Sender: FDA-Public Use
  Company Number: US-MYLANLABS-2011S1012712

PATIENT
  Age: 15 Year
  Sex: Male
  Weight: 87.09 kg

DRUGS (3)
  1. SEROQUEL [Concomitant]
  2. AMNESTEEM [Suspect]
     Indication: ACNE CYSTIC
     Route: 048
     Dates: start: 20110401, end: 20110601
  3. ABILIFY [Concomitant]

REACTIONS (4)
  - SUICIDAL IDEATION [None]
  - CHEILITIS [None]
  - DEPRESSION [None]
  - MOOD SWINGS [None]
